FAERS Safety Report 6518235-0 (Version None)
Quarter: 2009Q4

REPORT INFORMATION
  Report Type: 
  Country: None (occurrence: None)
  Receive Date: 20091223
  Receipt Date: 20091223
  Transmission Date: 20100525
  Serious: No
  Sender: FDA-Public Use
  Company Number: None

PATIENT
  Age: 61 Year
  Sex: Male
  Weight: 68.0396 kg

DRUGS (1)
  1. VALACYCLOVIR HCL [Suspect]
     Indication: HERPES ZOSTER
     Dosage: 1 GRAM 3X DAILY PO
     Route: 048
     Dates: start: 20091208, end: 20091218

REACTIONS (4)
  - DERMATITIS ALLERGIC [None]
  - DRUG INEFFECTIVE [None]
  - HERPES ZOSTER [None]
  - PRODUCT SUBSTITUTION ISSUE [None]
